FAERS Safety Report 15825386 (Version 1)
Quarter: 2018Q4

REPORT INFORMATION
  Report Type: Spontaneous
  Country: US (occurrence: US)
  Receive Date: 20181215
  Receipt Date: 20181215
  Transmission Date: 20190205
  Serious: Yes (Death, Hospitalization)
  Sender: FDA-Public Use
  Company Number: None

PATIENT
  Age: 59 Year
  Sex: Male
  Weight: 59.1 kg

DRUGS (1)
  1. VARENICLINE TARTRATE [Suspect]
     Active Substance: VARENICLINE TARTRATE
     Dates: end: 20180917

REACTIONS (13)
  - Respiration abnormal [None]
  - Dysarthria [None]
  - Blood pressure immeasurable [None]
  - Atrial fibrillation [None]
  - Depressed level of consciousness [None]
  - Leukocytosis [None]
  - Refusal of treatment by patient [None]
  - Pulse absent [None]
  - Troponin increased [None]
  - Confusional state [None]
  - Body temperature decreased [None]
  - Fibrin D dimer increased [None]
  - Respiratory arrest [None]

NARRATIVE: CASE EVENT DATE: 20181129
